FAERS Safety Report 5092243-1 (Version None)
Quarter: 2006Q3

REPORT INFORMATION
  Report Type: 
  Country: None (occurrence: None)
  Receive Date: 20060828
  Receipt Date: 20060828
  Transmission Date: 20061208
  Serious: Yes (Hospitalization)
  Sender: FDA-Public Use
  Company Number: None

PATIENT
  Age: 37 Year
  Sex: Male
  Weight: 88.6 kg

DRUGS (1)
  1. RILUTEK [Suspect]
     Indication: AMYOTROPHIC LATERAL SCLEROSIS
     Dosage: 50MG BID PO
     Route: 048
     Dates: start: 20060705, end: 20060814

REACTIONS (8)
  - ASTHENIA [None]
  - COUGH [None]
  - DECREASED APPETITE [None]
  - DRY MOUTH [None]
  - DYSPNOEA [None]
  - HEADACHE [None]
  - NAUSEA [None]
  - PYREXIA [None]
